FAERS Safety Report 24896228 (Version 1)
Quarter: 2025Q1

REPORT INFORMATION
  Report Type: Spontaneous
  Country: US (occurrence: US)
  Receive Date: 20250128
  Receipt Date: 20250128
  Transmission Date: 20250409
  Serious: No
  Sender: CALLIDITAS THERAPEUTICS AB
  Company Number: US-Calliditas-2024CAL01421

PATIENT
  Age: 37 Year
  Sex: Male

DRUGS (2)
  1. TARPEYO [Suspect]
     Active Substance: BUDESONIDE
     Indication: Haematuria
     Route: 048
     Dates: start: 20240605
  2. VALSARTAN [Concomitant]
     Active Substance: VALSARTAN

REACTIONS (5)
  - Acne [Unknown]
  - Contusion [Unknown]
  - Off label use [Unknown]
  - Rash [Unknown]
  - Product dose omission issue [Not Recovered/Not Resolved]
